FAERS Safety Report 15682344 (Version 1)
Quarter: 2018Q4

REPORT INFORMATION
  Report Type: Spontaneous
  Country: US (occurrence: US)
  Receive Date: 20181203
  Receipt Date: 20181203
  Transmission Date: 20190205
  Serious: No
  Sender: FDA-Public Use
  Company Number: US-PFIZER INC-2018494521

PATIENT
  Age: 65 Year
  Sex: Male

DRUGS (1)
  1. XELJANZ XR [Suspect]
     Active Substance: TOFACITINIB CITRATE
     Dosage: 11 MG, UNK
     Dates: start: 20181022

REACTIONS (6)
  - Poor peripheral circulation [Unknown]
  - Gait disturbance [Unknown]
  - Arthralgia [Unknown]
  - Depression [Unknown]
  - Decreased appetite [Unknown]
  - Peripheral coldness [Unknown]
